FAERS Safety Report 15462179 (Version 1)
Quarter: 2018Q4

REPORT INFORMATION
  Report Type: Spontaneous
  Country: DE (occurrence: DE)
  Receive Date: 20181004
  Receipt Date: 20181004
  Transmission Date: 20190204
  Serious: Yes (Death)
  Sender: FDA-Public Use
  Company Number: DE-BAXTER-2018BAX024541

PATIENT
  Age: 8 Year
  Sex: Male
  Weight: 24 kg

DRUGS (3)
  1. URBASON [Suspect]
     Active Substance: METHYLPREDNISOLONE
     Indication: AUTOIMMUNE HAEMOLYTIC ANAEMIA
     Dosage: 2X2 - 2X120 MG
     Route: 041
     Dates: start: 201510, end: 20160216
  2. ENDOXAN 1G [Suspect]
     Active Substance: CYCLOPHOSPHAMIDE
     Indication: AUTOIMMUNE HAEMOLYTIC ANAEMIA
     Route: 065
  3. SOLIRIS [Suspect]
     Active Substance: ECULIZUMAB
     Indication: AUTOIMMUNE HAEMOLYTIC ANAEMIA
     Route: 041
     Dates: start: 20160127, end: 20160210

REACTIONS (5)
  - Thrombocytopenia [Fatal]
  - Neutropenia [Fatal]
  - Sepsis [Fatal]
  - Acute endocarditis [Fatal]
  - Agranulocytosis [Fatal]

NARRATIVE: CASE EVENT DATE: 201602
